FAERS Safety Report 18100777 (Version 3)
Quarter: 2020Q3

REPORT INFORMATION
  Report Type: Report from Study
  Country: DE (occurrence: DE)
  Receive Date: 20200731
  Receipt Date: 20200901
  Transmission Date: 20201103
  Serious: No
  Sender: FDA-Public Use
  Company Number: DE-JNJFOC-20200729573

PATIENT

DRUGS (2)
  1. BLINDED GUSELKUMAB [Suspect]
     Active Substance: GUSELKUMAB
     Indication: PRODUCT USED FOR UNKNOWN INDICATION
     Dosage: THE SUSPECT PRODUCT REPORTED AS TREMFYA
     Route: 058
  2. BLINDED GUSELKUMAB [Suspect]
     Active Substance: GUSELKUMAB

REACTIONS (1)
  - Device issue [Unknown]

NARRATIVE: CASE EVENT DATE: 20200708
